FAERS Safety Report 7008057-9 (Version None)
Quarter: 2010Q3

REPORT INFORMATION
  Report Type: 
  Country: None (occurrence: None)
  Receive Date: 20100922
  Receipt Date: 20100910
  Transmission Date: 20110219
  Serious: Yes (Hospitalization, Other)
  Sender: FDA-Public Use
  Company Number: US-ELI_LILLY_AND_COMPANY-US201007000301

PATIENT
  Sex: Female

DRUGS (12)
  1. FORTEO [Suspect]
     Indication: OSTEOPOROSIS
     Dosage: 20 UG, DAILY (1/D)
     Dates: start: 20100416
  2. ASACOL [Concomitant]
  3. PREDNISONE [Concomitant]
  4. POTASSIUM [Concomitant]
  5. CALCIUM [Concomitant]
  6. XANAX [Concomitant]
  7. ANTIHYPERTENSIVES [Concomitant]
  8. ANTIDEPRESSANTS [Concomitant]
  9. LASIX [Concomitant]
  10. DIAZIDE [Concomitant]
  11. ZAROXOLYN [Concomitant]
  12. ZORAXIN [Concomitant]

REACTIONS (8)
  - CONTUSION [None]
  - FALL [None]
  - GLAUCOMA [None]
  - HOSPITALISATION [None]
  - MACULAR DEGENERATION [None]
  - PELVIC FRACTURE [None]
  - VISUAL ACUITY REDUCED [None]
  - WEIGHT DECREASED [None]
